FAERS Safety Report 10050364 (Version 1)
Quarter: 2014Q2

REPORT INFORMATION
  Report Type: Spontaneous
  Country: US (occurrence: US)
  Receive Date: 20140401
  Receipt Date: 20140401
  Transmission Date: 20141212
  Serious: Yes (Hospitalization)
  Sender: FDA-Public Use
  Company Number: US-BRISTOL-MYERS SQUIBB COMPANY-20552493

PATIENT
  Sex: Female

DRUGS (3)
  1. ABILIFY TABS [Suspect]
  2. CELEXA [Concomitant]
  3. BENZODIAZEPINE [Concomitant]

REACTIONS (2)
  - Sepsis [Unknown]
  - Urinary tract infection [Unknown]
